FAERS Safety Report 11682678 (Version 6)
Quarter: 2016Q4

REPORT INFORMATION
  Report Type: Spontaneous
  Country: FR (occurrence: FR)
  Receive Date: 20151029
  Receipt Date: 20161028
  Transmission Date: 20170206
  Serious: Yes (Death, Hospitalization, Other)
  Sender: FDA-Public Use
  Company Number: FR-009507513-1510FRA011012

PATIENT
  Age: 58 Year
  Sex: Male

DRUGS (20)
  1. RIBAVIRIN. [Suspect]
     Active Substance: RIBAVIRIN
     Indication: HEPATITIS C
     Dosage: UNK
  2. XATRAL [Concomitant]
     Active Substance: ALFUZOSIN
     Indication: DYSURIA
     Dosage: 10 MG, QD
     Dates: start: 20160321
  3. REBETOL [Suspect]
     Active Substance: RIBAVIRIN
     Indication: HEPATITIS C
     Dosage: 400 MG, QD
     Dates: start: 20140829, end: 20150211
  4. PEGASYS [Suspect]
     Active Substance: PEGINTERFERON ALFA-2A
     Indication: HEPATITIS C
     Dosage: UNK
  5. PEGASYS [Suspect]
     Active Substance: PEGINTERFERON ALFA-2A
     Dosage: 90 MICROGRAM, QW
     Dates: start: 20120216, end: 201208
  6. PROGRAF [Concomitant]
     Active Substance: TACROLIMUS\TACROLIMUS ANHYDROUS
     Indication: PROPHYLAXIS AGAINST TRANSPLANT REJECTION
     Dosage: UNK, BID
     Dates: start: 20100524
  7. KARDEGIC [Concomitant]
     Active Substance: ASPIRIN LYSINE
     Indication: ARTERIOSCLEROSIS
     Dosage: 75 MG, QD
  8. SOVALDI [Concomitant]
     Active Substance: SOFOSBUVIR
     Indication: HEPATITIS VIRAL
     Dosage: 400 MG, QD
     Dates: start: 20140829, end: 20150211
  9. SOFOSBUVIR [Suspect]
     Active Substance: SOFOSBUVIR
     Indication: HEPATITIS C
     Dosage: 400 MG, QD
     Dates: start: 20140829, end: 20150211
  10. KARDEGIC [Concomitant]
     Active Substance: ASPIRIN LYSINE
     Indication: CORONARY ARTERY DISEASE
  11. BISOPROLOL [Concomitant]
     Active Substance: BISOPROLOL
     Indication: HYPERTENSION
     Dosage: 1.25 MG, QD
  12. DACLATASVIR. [Suspect]
     Active Substance: DACLATASVIR
     Indication: HEPATITIS C
     Dosage: 60 MG, QD
     Dates: start: 20140829, end: 20150211
  13. DAKLINZA [Concomitant]
     Active Substance: DACLATASVIR
     Indication: HEPATITIS C
     Dosage: 60 MG, QD
     Route: 065
     Dates: start: 20140829, end: 20150211
  14. REBETOL [Suspect]
     Active Substance: RIBAVIRIN
     Indication: HEPATITIS C
     Dosage: 200 MG, BID
     Route: 048
     Dates: start: 20120216, end: 201208
  15. ARANESP [Concomitant]
     Active Substance: DARBEPOETIN ALFA
     Indication: ANAEMIA
     Dosage: UNK UNK, BIM
     Dates: start: 20120216
  16. AMANTADINE [Concomitant]
     Active Substance: AMANTADINE
     Indication: HEPATITIS C
     Dosage: UNK
     Route: 065
  17. SOVALDI [Concomitant]
     Active Substance: SOFOSBUVIR
     Indication: HEPATITIS C
  18. CELLCEPT [Concomitant]
     Active Substance: MYCOPHENOLATE MOFETIL\MYCOPHENOLATE MOFETIL HYDROCHLORIDE
     Indication: PROPHYLAXIS AGAINST TRANSPLANT REJECTION
     Dosage: 500 MG, BID
     Dates: start: 20100524
  19. INTERFERON ALFA-2B [Suspect]
     Active Substance: INTERFERON ALFA-2B
     Indication: HEPATITIS C
     Dosage: UNK
  20. CORTANCYL [Concomitant]
     Active Substance: PREDNISONE
     Indication: TRANSPLANT REJECTION
     Dosage: 5 MG, QD

REACTIONS (8)
  - Blood creatinine increased [Recovering/Resolving]
  - Death [Fatal]
  - Acute coronary syndrome [Recovered/Resolved]
  - Acute myeloid leukaemia [Not Recovered/Not Resolved]
  - Systemic inflammatory response syndrome [Recovering/Resolving]
  - Thrombocytopenia [Recovering/Resolving]
  - Anaemia [Recovering/Resolving]
  - Neutropenia [Recovering/Resolving]

NARRATIVE: CASE EVENT DATE: 20150408
